FAERS Safety Report 4650326-1 (Version None)
Quarter: 2005Q3

REPORT INFORMATION
  Report Type: 
  Country: None (occurrence: None)
  Receive Date: 20050429
  Receipt Date: 20050419
  Transmission Date: 20060218
  Serious: Yes (Hospitalization)
  Sender: FDA-Public Use
  Company Number: 2005062690

PATIENT
  Age: 77 Year
  Sex: Male

DRUGS (3)
  1. CARDURA [Suspect]
     Indication: BENIGN PROSTATIC HYPERPLASIA
     Dosage: 4 MG (4 MG, 1 IN 1 D), ORAL
     Route: 048
     Dates: start: 20000912, end: 20041001
  2. VERAPAMIL HCL [Concomitant]
  3. ASPIRIN [Concomitant]

REACTIONS (3)
  - BENIGN PROSTATIC HYPERPLASIA [None]
  - BURNING SENSATION [None]
  - CALCULUS BLADDER [None]
